FAERS Safety Report 8159304-1 (Version None)
Quarter: 2012Q1

REPORT INFORMATION
  Report Type: 
  Country: None (occurrence: None)
  Receive Date: 20120223
  Receipt Date: 20120217
  Transmission Date: 20120608
  Serious: Yes (Death, Hospitalization)
  Sender: FDA-Public Use
  Company Number: IN-PFIZER INC-2012042855

PATIENT
  Age: 47 Year
  Sex: Male

DRUGS (1)
  1. SUTENT [Suspect]
     Indication: METASTATIC RENAL CELL CARCINOMA
     Dosage: 25 MG, 1X/DAY
     Route: 048
     Dates: start: 20120113, end: 20120131

REACTIONS (6)
  - DEATH [None]
  - HYPOPHAGIA [None]
  - MUTISM [None]
  - ASTHENIA [None]
  - HAEMOGLOBIN DECREASED [None]
  - HYPERCHLORHYDRIA [None]
